FAERS Safety Report 7507625 (Version 1)
Quarter: 2020Q3

REPORT INFORMATION
  Report Type: Spontaneous
  Country: DE (occurrence: None)
  Receive Date: 20100714
  Receipt Date: 20100714
  Transmission Date: 20201104
  Serious: Yes (Hospitalization)
  Sender: FDA-Public Use
  Company Number: 2010070013

PATIENT
  Age: 73 Year
  Sex: Female

DRUGS (6)
  1. VITAMIN D3 [Suspect]
     Active Substance: CHOLECALCIFEROL
     Indication: OSTEOPOROSIS PROPHYLAXIS
  2. TORSEMIDE. [Suspect]
     Active Substance: TORSEMIDE
     Indication: OEDEMA PERIPHERAL
     Dosage: 10 MG (10 MG, 1 IN 1 D), ORAL
     Route: 048
  3. CALCIUM [Suspect]
     Active Substance: CALCIUM
     Indication: OSTEOPOROSIS PROPHYLAXIS
  4. ARCOXIA [Suspect]
     Active Substance: ETORICOXIB
     Indication: RHEUMATOID ARTHRITIS
     Dosage: 90 MG (90 MG, 1 IN 1 D), ORAL
     Route: 048
  5. PREDNISOLONE. [Suspect]
     Active Substance: PREDNISOLONE
     Indication: RHEUMATOID ARTHRITIS
     Dosage: 25 MG (25 MG, 1 IN 1 D), ORAL
     Route: 048
  6. ETORICOXIB. [Suspect]
     Active Substance: ETORICOXIB
     Indication: RHEUMATOID ARTHRITIS

REACTIONS (1)
  - Deep vein thrombosis [None]

NARRATIVE: CASE EVENT DATE: 20100609
